FAERS Safety Report 4793567-5 (Version None)
Quarter: 2005Q4

REPORT INFORMATION
  Report Type: 
  Country: None (occurrence: None)
  Receive Date: 20051006
  Receipt Date: 20050929
  Transmission Date: 20060501
  Serious: Yes (Hospitalization)
  Sender: FDA-Public Use
  Company Number: 200508457

PATIENT
  Age: 42 Year
  Sex: Female

DRUGS (1)
  1. BOTOX COSMETIC [Suspect]
     Indication: SKIN WRINKLING
     Dosage: 24 UNITS ONCE IM
     Route: 030
     Dates: start: 20050920, end: 20050920

REACTIONS (2)
  - DYSPNOEA [None]
  - POST PROCEDURAL COMPLICATION [None]
